FAERS Safety Report 8299798-4 (Version None)
Quarter: 2012Q2

REPORT INFORMATION
  Report Type: 
  Country: None (occurrence: None)
  Receive Date: 20120419
  Receipt Date: 20120419
  Transmission Date: 20120825
  Serious: Yes (Other)
  Sender: FDA-Public Use
  Company Number: None

PATIENT
  Age: 61 Year
  Sex: Male
  Weight: 99.79 kg

DRUGS (18)
  1. INSULIN [Concomitant]
  2. GAMMAGARD [Suspect]
     Indication: KIDNEY TRANSPLANT REJECTION
     Dosage: 50 G
     Route: 041
     Dates: start: 20120222, end: 20120328
  3. PROGRAF [Concomitant]
  4. METOPROLOL TARTRATE [Concomitant]
  5. POTASSIUM [Concomitant]
  6. LIPITOR [Concomitant]
  7. ASPIRIN [Concomitant]
  8. CLONIDINE [Concomitant]
  9. NIFEDIPINE [Concomitant]
  10. HECTORAL [Concomitant]
  11. VALCYTE [Concomitant]
  12. FUROSEMIDE [Concomitant]
  13. PEPCID [Concomitant]
  14. MYFORTIC [Concomitant]
  15. MINOXIDIL [Concomitant]
  16. LISINOPRIL [Concomitant]
  17. PREDNISONE TAB [Concomitant]
  18. HYDRALAZINE HCL [Concomitant]

REACTIONS (1)
  - RASH [None]
